FAERS Safety Report 8971283 (Version 2)
Quarter: 2013Q2

REPORT INFORMATION
  Report Type: Spontaneous
  Country: IT (occurrence: IT)
  Receive Date: 20121217
  Receipt Date: 20130401
  Transmission Date: 20140414
  Serious: Yes (Other)
  Sender: FDA-Public Use
  Company Number: IT-PFIZER INC-2012319441

PATIENT
  Age: 53 Year
  Sex: Male
  Weight: 85 kg

DRUGS (7)
  1. TOTALIP [Suspect]
     Indication: DYSLIPIDAEMIA
     Dosage: 20 MG, 1X/DAY
     Route: 048
     Dates: start: 20090302, end: 20121210
  2. ATENOL [Concomitant]
     Dosage: UNK
  3. VALPRESSION [Concomitant]
     Dosage: UNK
  4. TESTO ENANT [Concomitant]
     Dosage: 250 MG, UNK
  5. CORTONE ACETATO [Concomitant]
     Dosage: UNK
  6. EUTIROX [Concomitant]
     Dosage: UNK
  7. ESKIM [Concomitant]
     Dosage: 1000 MG, 1X/DAY
     Route: 048

REACTIONS (3)
  - Blood lactate dehydrogenase increased [Unknown]
  - Transaminases increased [Unknown]
  - Blood creatine phosphokinase increased [Unknown]
